FAERS Safety Report 14547389 (Version 1)
Quarter: 2018Q1

REPORT INFORMATION
  Report Type: Spontaneous
  Country: ES (occurrence: ES)
  Receive Date: 20180219
  Receipt Date: 20180219
  Transmission Date: 20180509
  Serious: Yes (Hospitalization)
  Sender: FDA-Public Use
  Company Number: ES-PFIZER INC-2018066568

PATIENT
  Age: 26 Year
  Sex: Female

DRUGS (1)
  1. METHOTREXATE SODIUM. [Suspect]
     Active Substance: METHOTREXATE SODIUM
     Indication: ACUTE LYMPHOCYTIC LEUKAEMIA
     Dosage: 1 UNIT, CYCLICAL
     Route: 042
     Dates: start: 20170603, end: 20170801

REACTIONS (1)
  - Radiculopathy [Not Recovered/Not Resolved]

NARRATIVE: CASE EVENT DATE: 20170811
